FAERS Safety Report 7358835-1 (Version None)
Quarter: 2011Q1

REPORT INFORMATION
  Report Type: 
  Country: None (occurrence: None)
  Receive Date: 20110317
  Receipt Date: 20110310
  Transmission Date: 20110831
  Serious: Yes (Death, Hospitalization)
  Sender: FDA-Public Use
  Company Number: B0699688A

PATIENT
  Age: 63 Year
  Sex: Female

DRUGS (11)
  1. PRAVACHOL [Concomitant]
  2. THORAZINE [Concomitant]
  3. ZYPREXA [Concomitant]
  4. INSULIN [Concomitant]
  5. AVANDIA [Suspect]
     Indication: DIABETES MELLITUS
     Dosage: 8MG PER DAY
     Route: 048
     Dates: start: 20010401, end: 20030501
  6. CLONIDINE [Concomitant]
  7. PERCOCET [Concomitant]
  8. GLUCOTROL [Concomitant]
  9. CARDIZEM [Concomitant]
  10. MEGACE [Concomitant]
  11. ALTACE [Concomitant]

REACTIONS (3)
  - CARDIO-RESPIRATORY ARREST [None]
  - CARDIAC FAILURE CONGESTIVE [None]
  - CEREBROVASCULAR ACCIDENT [None]
